FAERS Safety Report 16907136 (Version 1)
Quarter: 2019Q4

REPORT INFORMATION
  Report Type: Report from Study
  Country: AR (occurrence: AR)
  Receive Date: 20191011
  Receipt Date: 20191011
  Transmission Date: 20200122
  Serious: Yes (Death)
  Sender: FDA-Public Use
  Company Number: AR-EMD SERONO-9122024

PATIENT
  Age: 72 Year
  Sex: Male

DRUGS (1)
  1. REBIF [Suspect]
     Active Substance: INTERFERON BETA-1A
     Indication: MULTIPLE SCLEROSIS
     Dosage: REBISMART 2.0 29G NEEDLE
     Route: 058
     Dates: start: 20000731

REACTIONS (1)
  - Death [Fatal]

NARRATIVE: CASE EVENT DATE: 20190926
